FAERS Safety Report 5353149-3 (Version None)
Quarter: 2007Q2

REPORT INFORMATION
  Report Type: 
  Country: None (occurrence: None)
  Receive Date: 20070607
  Receipt Date: 20070525
  Transmission Date: 20071010
  Serious: Yes (Other)
  Sender: FDA-Public Use
  Company Number: PHFR2007GB01734

PATIENT
  Age: 39 Year
  Sex: Male
  Weight: 83 kg

DRUGS (2)
  1. DICLOFENAC (DICLOFENAC DIETYLAMMONIUM SALT) UNKNOWN [Suspect]
     Indication: TENDONITIS
     Dosage: ORAL
     Route: 048
     Dates: start: 20070514, end: 20070516
  2. CO-CODAMOL (NGX) (ACETAMINOPHEN (PARACETAMOL), CODEINE PHOSPHATE) UNKN [Suspect]
     Indication: TENDONITIS
     Dosage: ORAL
     Route: 048
     Dates: start: 20070514

REACTIONS (1)
  - MIGRAINE [None]
